FAERS Safety Report 6354022-4 (Version None)
Quarter: 2009Q3

REPORT INFORMATION
  Report Type: 
  Country: None (occurrence: None)
  Receive Date: 20090914
  Receipt Date: 20090904
  Transmission Date: 20100115
  Serious: Yes (Other)
  Sender: FDA-Public Use
  Company Number: BR-BAYER-200810531LA

PATIENT
  Age: 39 Year
  Sex: Female

DRUGS (4)
  1. BETAFERON [Suspect]
     Indication: MULTIPLE SCLEROSIS
     Route: 058
     Dates: start: 20060101
  2. BETAFERON [Suspect]
     Dosage: BETAJECT
     Route: 058
     Dates: end: 20090831
  3. RIVOTRIL [Concomitant]
     Indication: ANXIETY
     Dosage: 10 DROPS AT NIGHT
     Route: 048
     Dates: start: 20050101
  4. DIAMOX [Concomitant]
     Indication: INTRACRANIAL PRESSURE INCREASED
     Route: 048
     Dates: start: 20030101

REACTIONS (18)
  - ANXIETY [None]
  - ASTHENIA [None]
  - DEPRESSION [None]
  - FALL [None]
  - FEELING HOT [None]
  - HYPOPHAGIA [None]
  - INFLUENZA [None]
  - MALAISE [None]
  - MUSCULAR WEAKNESS [None]
  - MUSCULOSKELETAL CHEST PAIN [None]
  - NAUSEA [None]
  - PAIN [None]
  - PYREXIA [None]
  - RETCHING [None]
  - SENSATION OF HEAVINESS [None]
  - SYNCOPE [None]
  - TRAUMATIC FRACTURE [None]
  - VISUAL ACUITY REDUCED [None]
